FAERS Safety Report 5563260-X (Version None)
Quarter: 2007Q4

REPORT INFORMATION
  Report Type: 
  Country: None (occurrence: None)
  Receive Date: 20071212
  Receipt Date: 20071207
  Transmission Date: 20080405
  Serious: Yes (Other)
  Sender: FDA-Public Use
  Company Number: 2007337220

PATIENT
  Age: 25 Year
  Sex: Female
  Weight: 52.6173 kg

DRUGS (1)
  1. LISTERINE WHITENING QUICK DISSOLVING STRIPS (NO ACTIVE INGREDIENT) [Suspect]
     Indication: DENTAL DISORDER PROPHYLAXIS
     Dosage: 2 STRIPS 1 MORNING AND 1 AT NIGHT,ORAL
     Route: 048
     Dates: start: 20071024, end: 20071124

REACTIONS (3)
  - GINGIVAL PAIN [None]
  - ORAL MUCOSAL EXFOLIATION [None]
  - SCAB [None]
